FAERS Safety Report 23383179 (Version 3)
Quarter: 2024Q1

REPORT INFORMATION
  Report Type: Spontaneous
  Country: US (occurrence: US)
  Receive Date: 20240109
  Receipt Date: 20240213
  Transmission Date: 20240410
  Serious: No
  Sender: FDA-Public Use
  Company Number: US-PFIZER INC-202300351084

PATIENT
  Age: 31 Year
  Sex: Female
  Weight: 98.866 kg

DRUGS (2)
  1. CIBINQO [Suspect]
     Active Substance: ABROCITINIB
     Indication: Eczema
     Dosage: 50 MG, 1X/DAY
     Route: 048
  2. LOESTRIN 24 FE [Concomitant]
     Active Substance: ETHINYL ESTRADIOL\NORETHINDRONE ACETATE
     Indication: Contraception
     Dosage: UNK
     Route: 048

REACTIONS (2)
  - Drug effect less than expected [Unknown]
  - Oligomenorrhoea [Recovered/Resolved]
